FAERS Safety Report 11415746 (Version 2)
Quarter: 2015Q3

REPORT INFORMATION
  Report Type: Spontaneous
  Country: BE (occurrence: BE)
  Receive Date: 20150825
  Receipt Date: 20150828
  Transmission Date: 20151125
  Serious: Yes (Death, Other)
  Sender: FDA-Public Use
  Company Number: PHHY2015BE101696

PATIENT
  Age: 45 Year
  Sex: Female

DRUGS (5)
  1. ROFERON-A [Suspect]
     Active Substance: INTERFERON ALFA-2A
     Indication: MALIGNANT PLEURAL EFFUSION
     Dosage: UNK UNK, QW3
     Route: 058
  2. AZITHROMYCIN [Concomitant]
     Active Substance: AZITHROMYCIN ANHYDROUS
     Indication: OBLITERATIVE BRONCHIOLITIS
     Route: 065
  3. EVEROLIMUS [Suspect]
     Active Substance: EVEROLIMUS
     Indication: HEPATIC CANCER
     Dosage: UNK
     Route: 065
     Dates: start: 2011
  4. TACROLIMUS. [Suspect]
     Active Substance: TACROLIMUS
     Indication: LUNG TRANSPLANT
     Route: 065
  5. METHYLPREDNISOLONE. [Concomitant]
     Active Substance: METHYLPREDNISOLONE
     Indication: LUNG TRANSPLANT
     Route: 065

REACTIONS (3)
  - Hepatic cancer [Unknown]
  - Death [Fatal]
  - Drug intolerance [Unknown]
